FAERS Safety Report 10133712 (Version 1)
Quarter: 2014Q2

REPORT INFORMATION
  Report Type: Spontaneous
  Country: JP (occurrence: JP)
  Receive Date: 20140428
  Receipt Date: 20140428
  Transmission Date: 20141212
  Serious: Yes (Other)
  Sender: FDA-Public Use
  Company Number: PHHY2014JP051063

PATIENT
  Sex: Female

DRUGS (1)
  1. LOCHOL [Suspect]
     Dosage: 30 MG, DAILY
     Route: 048

REACTIONS (1)
  - Interstitial lung disease [Unknown]
